FAERS Safety Report 13928523 (Version 2)
Quarter: 2017Q4

REPORT INFORMATION
  Report Type: Spontaneous
  Country: FR (occurrence: FR)
  Receive Date: 20170901
  Receipt Date: 20171002
  Transmission Date: 20180320
  Serious: Yes (Other)
  Sender: FDA-Public Use
  Company Number: FR-JNJFOC-20170828849

PATIENT
  Age: 56 Year
  Sex: Male
  Weight: 104 kg

DRUGS (3)
  1. ADALIMUMAB [Suspect]
     Active Substance: ADALIMUMAB
     Indication: CROHN^S DISEASE
     Route: 065
  2. IMUREL [Concomitant]
     Active Substance: AZATHIOPRINE SODIUM
     Route: 048
     Dates: start: 20091024, end: 20140624
  3. REMICADE [Suspect]
     Active Substance: INFLIXIMAB
     Indication: CROHN^S DISEASE
     Route: 042
     Dates: start: 20101028, end: 20140624

REACTIONS (2)
  - Crohn^s disease [Unknown]
  - Adenocarcinoma of colon [Not Recovered/Not Resolved]

NARRATIVE: CASE EVENT DATE: 20170810
